FAERS Safety Report 4533499-0 (Version None)
Quarter: 2004Q4

REPORT INFORMATION
  Report Type: 
  Country: None (occurrence: None)
  Receive Date: 20041210
  Receipt Date: 20041104
  Transmission Date: 20050328
  Serious: Yes (Hospitalization)
  Sender: FDA-Public Use
  Company Number: F03200400106

PATIENT
  Age: 44 Year
  Sex: Female
  Weight: 52.7 kg

DRUGS (5)
  1. ELOXATIN [Suspect]
     Indication: PANCREATIC CARCINOMA METASTATIC
     Dosage: 130 MG/M2 ONCE - INRAVENOUS NOS
     Route: 042
     Dates: start: 20041014, end: 20041014
  2. TAXOTERE [Suspect]
     Indication: PANCREATIC CARCINOMA METASTATIC
     Dosage: 35 MG/M2 1/WEEK, INTRAVENOUS NOS
     Route: 042
     Dates: start: 20041021, end: 20041021
  3. ENOXAPARIN SODIUM [Concomitant]
  4. FENTANYL [Concomitant]
  5. PERCOCET [Concomitant]

REACTIONS (2)
  - HYPOTENSION [None]
  - PYREXIA [None]
